FAERS Safety Report 6039232-8 (Version None)
Quarter: 2009Q1

REPORT INFORMATION
  Report Type: 
  Country: None (occurrence: None)
  Receive Date: 20090115
  Receipt Date: 20090106
  Transmission Date: 20090719
  Serious: Yes (Hospitalization, Other)
  Sender: FDA-Public Use
  Company Number: PHBS2006BR19461

PATIENT
  Age: 56 Year
  Sex: Female
  Weight: 67 kg

DRUGS (11)
  1. FORASEQ [Suspect]
     Indication: ASTHMA
     Dosage: UNK, BID
     Dates: start: 20060601
  2. BEROTEC [Concomitant]
     Indication: ASTHMA
     Dosage: UNK
  3. BEROTEC [Concomitant]
     Indication: BRONCHITIS
  4. ATROVENT [Concomitant]
     Indication: ASTHMA
     Dosage: UNK
  5. CELESTONE SOLUSPAN [Concomitant]
     Indication: ASTHMA
     Dosage: 5 MG, BID
     Route: 048
  6. CELESTONE SOLUSPAN [Concomitant]
     Indication: BRONCHITIS
  7. CLONAZEPAM [Concomitant]
     Indication: DEPRESSION
     Dosage: 2 MG, BID
     Route: 048
  8. CLONAZEPAM [Concomitant]
     Indication: INSOMNIA
  9. DIAZEPAM [Concomitant]
     Indication: NERVOUSNESS
     Dosage: 2 TAB/DAY
     Route: 048
  10. PREDSIM [Concomitant]
     Indication: COUGH
     Dosage: 5 ML, PRN
     Route: 048
  11. BUDESONIDE W/FORMOTEROL FUMARATE [Suspect]

REACTIONS (9)
  - ABDOMINAL PAIN [None]
  - ASTHMA [None]
  - CATARACT [None]
  - CATARACT OPERATION [None]
  - DECREASED APPETITE [None]
  - DYSENTERY [None]
  - VISUAL ACUITY REDUCED [None]
  - WEIGHT DECREASED [None]
  - WEIGHT INCREASED [None]
